FAERS Safety Report 8545234-X (Version None)
Quarter: 2012Q3

REPORT INFORMATION
  Report Type: 
  Country: None (occurrence: None)
  Receive Date: 20120727
  Receipt Date: 20120717
  Transmission Date: 20120928
  Serious: Yes (Hospitalization, Other)
  Sender: FDA-Public Use
  Company Number: US-ACTELION-A-US2012-67390

PATIENT

DRUGS (2)
  1. TRACLEER [Suspect]
     Indication: PULMONARY ARTERIAL HYPERTENSION
     Dosage: UNK
     Route: 048
  2. SILDENAFIL [Concomitant]

REACTIONS (8)
  - PULMONARY ARTERIAL HYPERTENSION [None]
  - FATIGUE [None]
  - GASTROINTESTINAL INFECTION [None]
  - PNEUMONIA [None]
  - DYSPNOEA [None]
  - ORGAN FAILURE [None]
  - PULMONARY OEDEMA [None]
  - HEPATIC FAILURE [None]
